FAERS Safety Report 5156093-X (Version None)
Quarter: 2006Q4

REPORT INFORMATION
  Report Type: 
  Country: None (occurrence: None)
  Receive Date: 20061122
  Receipt Date: 20060911
  Transmission Date: 20070319
  Serious: Yes (Other)
  Sender: FDA-Public Use
  Company Number: US-ROCHE-463255

PATIENT
  Age: 78 Year
  Sex: Female
  Weight: 73.5 kg

DRUGS (5)
  1. BONIVA [Suspect]
     Indication: OSTEOPOROSIS
     Route: 048
     Dates: start: 20060701
  2. HYDROCHLOROTHIAZIDE [Concomitant]
     Indication: HYPERTENSION
     Route: 048
     Dates: start: 19860615
  3. NORVASC [Concomitant]
     Indication: HYPERTENSION
     Route: 048
     Dates: start: 20030615
  4. LISINOPRIL [Concomitant]
     Indication: HYPERTENSION
     Route: 048
     Dates: start: 20030615
  5. XANAX [Concomitant]
     Route: 048
     Dates: start: 20010615

REACTIONS (6)
  - BLADDER CANCER [None]
  - BLOOD PRESSURE INCREASED [None]
  - HEART RATE INCREASED [None]
  - INFLUENZA LIKE ILLNESS [None]
  - TREMOR [None]
  - WRONG TECHNIQUE IN DRUG USAGE PROCESS [None]
